FAERS Safety Report 8155816-5 (Version None)
Quarter: 2012Q1

REPORT INFORMATION
  Report Type: 
  Country: None (occurrence: None)
  Receive Date: 20120215
  Receipt Date: 20120131
  Transmission Date: 20120608
  Serious: Yes (Life-Threatening, Hospitalization)
  Sender: FDA-Public Use
  Company Number: TCI2011A03550

PATIENT
  Age: 64 Year
  Sex: Male

DRUGS (4)
  1. INSULINS AND ANALOGUES [Concomitant]
  2. METFORMIN HYDROCHLORIDE [Concomitant]
  3. ACTOS [Suspect]
     Indication: TYPE 2 DIABETES MELLITUS
     Dosage: 15 MG (15 MG, 1 IN 1 D), PER ORAL
     Route: 048
     Dates: start: 20080527
  4. LIPITOR [Concomitant]

REACTIONS (3)
  - LARGE INTESTINE CARCINOMA [None]
  - METASTASES TO LIVER [None]
  - GAMMA-GLUTAMYLTRANSFERASE INCREASED [None]
